FAERS Safety Report 6485503-0 (Version None)
Quarter: 2009Q4

REPORT INFORMATION
  Report Type: 
  Country: None (occurrence: None)
  Receive Date: 20091209
  Receipt Date: 20090626
  Transmission Date: 20100525
  Serious: No
  Sender: FDA-Public Use
  Company Number: US-AMGEN-KDL353400

PATIENT
  Age: 77 Year
  Sex: Male

DRUGS (5)
  1. ENBREL [Suspect]
     Indication: DRUG USE FOR UNKNOWN INDICATION
     Dates: start: 20080514
  2. SIMVASTATIN [Suspect]
  3. METFORMIN HCL [Concomitant]
  4. TERAZOSIN HCL [Concomitant]
  5. IRON [Concomitant]
     Route: 048

REACTIONS (2)
  - ANAEMIA [None]
  - DIZZINESS [None]
